FAERS Safety Report 6643320-2 (Version None)
Quarter: 2010Q1

REPORT INFORMATION
  Report Type: 
  Country: None (occurrence: None)
  Receive Date: 20100319
  Receipt Date: 20100308
  Transmission Date: 20100710
  Serious: No
  Sender: FDA-Public Use
  Company Number: FR-ELI_LILLY_AND_COMPANY-FR201002001445

PATIENT
  Age: 46 Year
  Sex: Male

DRUGS (5)
  1. CYMBALTA [Suspect]
     Indication: DEPRESSION
     Dosage: 60 MG, DAILY (1/D)
     Route: 048
     Dates: start: 20091120, end: 20100112
  2. TERCIAN [Concomitant]
     Indication: ANXIETY
     Dosage: 25 MG, 3/D
     Route: 048
     Dates: start: 20091120, end: 20091222
  3. SERESTA [Concomitant]
     Indication: ANXIETY
     Dosage: 50 MG, 2/D
     Route: 048
     Dates: start: 20091120
  4. STILNOX [Concomitant]
     Indication: INSOMNIA
     Dosage: 10 MG, DAILY (1/D)
     Route: 048
     Dates: start: 20091120
  5. SULFARLEM [Concomitant]
     Dosage: 75 MG, DAILY (1/D)
     Route: 048
     Dates: start: 20091120, end: 20091222

REACTIONS (4)
  - ALANINE AMINOTRANSFERASE INCREASED [None]
  - ASPARTATE AMINOTRANSFERASE INCREASED [None]
  - GAMMA-GLUTAMYLTRANSFERASE INCREASED [None]
  - HEPATIC PAIN [None]
